FAERS Safety Report 6365045-3 (Version None)
Quarter: 2009Q3

REPORT INFORMATION
  Report Type: 
  Country: None (occurrence: None)
  Receive Date: 20090919
  Receipt Date: 20090803
  Transmission Date: 20100115
  Serious: No
  Sender: FDA-Public Use
  Company Number: US-ABBOTT-09P-163-0589320-00

PATIENT
  Age: 38 Year
  Sex: Female

DRUGS (3)
  1. HUMIRA [Suspect]
     Indication: RHEUMATOID ARTHRITIS
     Route: 058
     Dates: start: 20090713
  2. UNKNOWN NASAL SPRAY [Suspect]
     Indication: HYPERSENSITIVITY
     Route: 055
     Dates: start: 20090629
  3. VYVANSE [Concomitant]
     Indication: ATTENTION DEFICIT/HYPERACTIVITY DISORDER
     Dates: start: 20090701

REACTIONS (3)
  - HEADACHE [None]
  - IRRITABILITY [None]
  - NAUSEA [None]
